FAERS Safety Report 24551997 (Version 1)
Quarter: 2024Q4

REPORT INFORMATION
  Report Type: Spontaneous
  Country: PL (occurrence: PL)
  Receive Date: 20241026
  Receipt Date: 20241026
  Transmission Date: 20250114
  Serious: Yes (Other)
  Sender: TEVA
  Company Number: None

PATIENT
  Age: 27 Year
  Sex: Female

DRUGS (5)
  1. CLORAZEPATE DIPOTASSIUM [Suspect]
     Active Substance: CLORAZEPATE DIPOTASSIUM
     Indication: Intentional self-injury
     Dosage: TIME INTERVAL: TOTAL
     Route: 048
     Dates: start: 20200216, end: 20200216
  2. TRAMADOL [Suspect]
     Active Substance: TRAMADOL
     Indication: Intentional self-injury
     Dosage: TIME INTERVAL: TOTAL
     Route: 048
     Dates: start: 20200216, end: 20200216
  3. FLUOXETINE HYDROCHLORIDE [Suspect]
     Active Substance: FLUOXETINE HYDROCHLORIDE
     Indication: Intentional self-injury
     Dosage: TIME INTERVAL: TOTAL
     Route: 048
     Dates: start: 20200216, end: 20200216
  4. XANAX [Suspect]
     Active Substance: ALPRAZOLAM
     Indication: Intentional self-injury
     Dosage: TIME INTERVAL: TOTAL
     Route: 048
     Dates: start: 20200216, end: 20200216
  5. LORAZEPAM [Suspect]
     Active Substance: LORAZEPAM
     Indication: Intentional self-injury
     Dosage: TIME INTERVAL: TOTAL
     Route: 048
     Dates: start: 20200216, end: 20200216

REACTIONS (1)
  - Coma [Recovered/Resolved]

NARRATIVE: CASE EVENT DATE: 20200216
